FAERS Safety Report 4608919-3 (Version None)
Quarter: 2005Q1

REPORT INFORMATION
  Report Type: 
  Country: None (occurrence: None)
  Receive Date: 20050309
  Receipt Date: 20050224
  Transmission Date: 20050727
  Serious: Yes (Other)
  Sender: FDA-Public Use
  Company Number: SUS1-2005-00161

PATIENT
  Sex: Female

DRUGS (1)
  1. PENTASA [Suspect]
     Indication: COLITIS ULCERATIVE
     Dosage: 1500 MG,  1X/DAY, QD, ORAL
     Route: 048
     Dates: start: 20050114, end: 20050127

REACTIONS (1)
  - INTERSTITIAL LUNG DISEASE [None]
